FAERS Safety Report 11099114 (Version 1)
Quarter: 2015Q2

REPORT INFORMATION
  Report Type: Spontaneous
  Country: US (occurrence: None)
  Receive Date: 20150506
  Receipt Date: 20150506
  Transmission Date: 20150821
  Serious: No
  Sender: FDA-Public Use
  Company Number: SOM-3316-AE

PATIENT
  Sex: Male

DRUGS (1)
  1. ZUTRIPRO [Suspect]
     Active Substance: CHLORPHENIRAMINE MALEATE\HYDROCODONE BITARTRATE\PSEUDOEPHEDRINE HYDROCHLORIDE
     Indication: COUGH
     Route: 048
     Dates: start: 201505

REACTIONS (3)
  - Ejaculation delayed [None]
  - Confusional state [None]
  - Therapeutic response unexpected [None]

NARRATIVE: CASE EVENT DATE: 201505
